FAERS Safety Report 8820023 (Version 2)
Quarter: 2012Q4

REPORT INFORMATION
  Report Type: Report from Study
  Country: JP (occurrence: JP)
  Receive Date: 20121001
  Receipt Date: 20121203
  Transmission Date: 20130627
  Serious: Yes (Other)
  Sender: FDA-Public Use
  Company Number: JP-VERTEX PHARMACEUTICAL INC.-AE-2012-007087

PATIENT
  Age: 56 Year
  Sex: Female

DRUGS (15)
  1. VX-950 (TELAPREVIR) [Suspect]
     Indication: CHRONIC HEPATITIS C
     Dosage: 1500 mg, qd
     Route: 048
     Dates: start: 20120327, end: 20120618
  2. REBETOL [Suspect]
     Indication: CHRONIC HEPATITIS C
     Dosage: 400 mg, qd
     Route: 048
     Dates: start: 20120327, end: 20120423
  3. REBETOL [Suspect]
     Dosage: 200 mg, qd
     Route: 048
     Dates: start: 20120424, end: 20120910
  4. PEGINTRON                          /01543001/ [Suspect]
     Indication: CHRONIC HEPATITIS C
     Dosage: 1.5 UNK, qw
     Route: 058
     Dates: start: 20120327, end: 20120327
  5. PEGINTRON                          /01543001/ [Suspect]
     Dosage: 0.8 UNK,qw
     Route: 058
     Dates: start: 20120403, end: 20120403
  6. PEGINTRON                          /01543001/ [Suspect]
     Dosage: 1.5 UNK, qw
     Route: 058
     Dates: start: 20120409, end: 20120409
  7. PEGINTRON                          /01543001/ [Suspect]
     Dosage: 0.8 UNK, qw
     Route: 058
     Dates: start: 20120417, end: 20120417
  8. PEGINTRON                          /01543001/ [Suspect]
     Dosage: 1.5 UNK, qw
     Route: 058
     Dates: start: 20120424, end: 20120424
  9. PEGINTRON                          /01543001/ [Suspect]
     Dosage: 0.8 UNK, qw
     Route: 058
     Dates: start: 20120501, end: 20120501
  10. PEGINTRON                          /01543001/ [Suspect]
     Dosage: 1.5 UNK, qw
     Route: 058
     Dates: start: 20120508, end: 20120515
  11. PEGINTRON                          /01543001/ [Suspect]
     Dosage: 0.75 UNK, qw
     Route: 058
     Dates: start: 20120522, end: 20120612
  12. PEGINTRON                          /01543001/ [Suspect]
     Dosage: 1.5 UNK, qw
     Route: 058
     Dates: start: 20120619, end: 20120619
  13. PEGINTRON                          /01543001/ [Suspect]
     Dosage: 0.75 UNK, qw
     Route: 058
     Dates: start: 20120626, end: 20120904
  14. DERMOVATE [Concomitant]
     Dosage: 5 g, qd
     Route: 061
     Dates: start: 20120329, end: 20120529
  15. DERMOVATE [Concomitant]
     Dosage: 5 UNK, UNK
     Route: 061
     Dates: end: 20120619

REACTIONS (1)
  - Neutrophil count decreased [Recovered/Resolved]
